FAERS Safety Report 6706301-6 (Version None)
Quarter: 2010Q2

REPORT INFORMATION
  Report Type: 
  Country: None (occurrence: None)
  Receive Date: 20100503
  Receipt Date: 20100421
  Transmission Date: 20101027
  Serious: Yes (Death, Other)
  Sender: FDA-Public Use
  Company Number: GB-SANOFI-AVENTIS-2010SA009417

PATIENT
  Age: 60 Year
  Sex: Male
  Weight: 134 kg

DRUGS (7)
  1. OXALIPLATIN [Suspect]
     Route: 041
     Dates: start: 20091027, end: 20091027
  2. OXALIPLATIN [Suspect]
     Route: 041
     Dates: start: 20091229, end: 20091229
  3. AVASTIN [Suspect]
     Route: 042
     Dates: start: 20091027, end: 20091027
  4. AVASTIN [Suspect]
     Route: 065
     Dates: start: 20091229, end: 20091229
  5. CAPECITABINE [Suspect]
     Route: 048
     Dates: start: 20091027, end: 20100107
  6. DEXAMETHASONE [Concomitant]
     Dates: start: 20091229, end: 20091231
  7. METOCLOPRAMIDE HYDROCHLORIDE [Concomitant]
     Dates: start: 20091229

REACTIONS (5)
  - CONSTIPATION [None]
  - HYPOTENSION [None]
  - MALIGNANT NEOPLASM PROGRESSION [None]
  - PULMONARY EMBOLISM [None]
  - SEPSIS [None]
